FAERS Safety Report 7125581-9 (Version None)
Quarter: 2010Q4

REPORT INFORMATION
  Report Type: 
  Country: None (occurrence: None)
  Receive Date: 20101129
  Receipt Date: 20041216
  Transmission Date: 20110411
  Serious: Yes (Other)
  Sender: FDA-Public Use
  Company Number: AU-ROCHE-741508

PATIENT
  Age: 23 Year
  Weight: 30 kg

DRUGS (2)
  1. CELLCEPT [Suspect]
     Route: 065
  2. CELLCEPT [Suspect]
     Dosage: LOWERED DOSE
     Route: 065

REACTIONS (1)
  - DRUG TOXICITY [None]
